FAERS Safety Report 25051496 (Version 2)
Quarter: 2025Q2

REPORT INFORMATION
  Report Type: Spontaneous
  Country: FR (occurrence: FR)
  Receive Date: 20250307
  Receipt Date: 20250423
  Transmission Date: 20250716
  Serious: Yes (Hospitalization)
  Sender: TEVA
  Company Number: None

PATIENT
  Age: 79 Year
  Sex: Male

DRUGS (8)
  1. ESOMEPRAZOLE [Suspect]
     Active Substance: ESOMEPRAZOLE
     Indication: Product used for unknown indication
     Route: 065
     Dates: start: 2005, end: 20250307
  2. EZETIMIBE [Concomitant]
     Active Substance: EZETIMIBE
     Indication: Dyslipidaemia
     Route: 048
  3. VILDAGLIPTIN [Concomitant]
     Active Substance: VILDAGLIPTIN
     Indication: Type 2 diabetes mellitus
     Dosage: 50 MG MORNING AND EVENING
     Route: 048
  4. CHOLECALCIFEROL [Concomitant]
     Active Substance: CHOLECALCIFEROL
     Indication: Vitamin supplementation
     Dosage: ORAL SOLUTION IN AMPOULE
     Route: 048
  5. PERINDOPRIL [Suspect]
     Active Substance: PERINDOPRIL
     Indication: Hypertension
     Route: 048
     Dates: start: 2015, end: 20250201
  6. CITALOPRAM HYDROBROMIDE [Concomitant]
     Active Substance: CITALOPRAM HYDROBROMIDE
     Indication: Product used for unknown indication
     Route: 048
  7. ATORVASTATIN [Suspect]
     Active Substance: ATORVASTATIN
     Indication: Dyslipidaemia
     Route: 048
     Dates: start: 2005
  8. METFORMIN HYDROCHLORIDE [Concomitant]
     Active Substance: METFORMIN HYDROCHLORIDE
     Indication: Type 2 diabetes mellitus
     Dosage: 1000 MG MORNING AND EVENING
     Route: 048

REACTIONS (1)
  - Lichenoid keratosis [Not Recovered/Not Resolved]

NARRATIVE: CASE EVENT DATE: 20240101
